FAERS Safety Report 9869305 (Version 2)
Quarter: 2014Q1

REPORT INFORMATION
  Report Type: Report from Study
  Country: DE (occurrence: DE)
  Receive Date: 20140205
  Receipt Date: 20140205
  Transmission Date: 20141002
  Serious: Yes (Hospitalization, Other)
  Sender: FDA-Public Use
  Company Number: DE-BRISTOL-MYERS SQUIBB COMPANY-19250521

PATIENT
  Age: 62 Year
  Sex: Male

DRUGS (1)
  1. ABATACEPT [Suspect]
     Indication: RHEUMATOID ARTHRITIS
     Dosage: 750MG:JUL10
     Dates: start: 20130204

REACTIONS (2)
  - Rheumatoid arthritis [Recovered/Resolved]
  - Psychotic disorder [Unknown]
